FAERS Safety Report 24188957 (Version 1)
Quarter: 2024Q3

REPORT INFORMATION
  Report Type: Spontaneous
  Country: US (occurrence: US)
  Receive Date: 20240808
  Receipt Date: 20240808
  Transmission Date: 20241017
  Serious: No
  Sender: OTSUKA
  Company Number: US-OTSUKA-2024_019421

PATIENT
  Sex: Male
  Weight: 99.79 kg

DRUGS (4)
  1. ABILIFY [Suspect]
     Active Substance: ARIPIPRAZOLE
     Indication: Schizoaffective disorder
     Dosage: 30 MG, QD
     Route: 048
  2. ABILIFY [Suspect]
     Active Substance: ARIPIPRAZOLE
     Indication: Bipolar disorder
     Dosage: UNK
     Route: 065
     Dates: start: 2023
  3. ABILIFY [Suspect]
     Active Substance: ARIPIPRAZOLE
     Indication: Attention deficit hyperactivity disorder
  4. EFFEXOR [Concomitant]
     Active Substance: VENLAFAXINE HYDROCHLORIDE
     Indication: Product used for unknown indication
     Dosage: UNK
     Route: 065
     Dates: start: 2023

REACTIONS (4)
  - Blood pressure abnormal [Not Recovered/Not Resolved]
  - Urticaria [Not Recovered/Not Resolved]
  - Product use issue [Not Recovered/Not Resolved]
  - Product use in unapproved indication [Unknown]
